FAERS Safety Report 5897360-1 (Version None)
Quarter: 2008Q3

REPORT INFORMATION
  Report Type: 
  Country: None (occurrence: None)
  Receive Date: 20080912
  Receipt Date: 20070813
  Transmission Date: 20090109
  Serious: Yes (Other)
  Sender: FDA-Public Use
  Company Number: 39869

PATIENT
  Sex: Male

DRUGS (1)
  1. CYTARABINE [Suspect]
     Indication: ACUTE LYMPHOCYTIC LEUKAEMIA
     Dosage: 3 DOSES OF 3 GRAMS/M2 (DECREASED TO 1.5 GRA

REACTIONS (3)
  - CONJUNCTIVITIS [None]
  - NEUTROPENIA [None]
  - OESOPHAGEAL DILATATION [None]
